FAERS Safety Report 6998254-0 (Version None)
Quarter: 2010Q3

REPORT INFORMATION
  Report Type: 
  Country: None (occurrence: None)
  Receive Date: 20100920
  Receipt Date: 20090817
  Transmission Date: 20110219
  Serious: No
  Sender: FDA-Public Use
  Company Number: US-ASTRAZENECA-2009SE08447

PATIENT
  Sex: Male
  Weight: 104.3 kg

DRUGS (2)
  1. SEROQUEL [Suspect]
     Route: 048
  2. LAMICTAL [Concomitant]

REACTIONS (7)
  - CONSTIPATION [None]
  - DIZZINESS [None]
  - DRY MOUTH [None]
  - EPILEPSY [None]
  - FATIGUE [None]
  - PHARYNGEAL OEDEMA [None]
  - WHITE BLOOD CELL COUNT DECREASED [None]
